FAERS Safety Report 6891027-9 (Version None)
Quarter: 2010Q3

REPORT INFORMATION
  Report Type: 
  Country: None (occurrence: None)
  Receive Date: 20100731
  Receipt Date: 20090511
  Transmission Date: 20110219
  Serious: No
  Sender: FDA-Public Use
  Company Number: US-PFIZER INC-2009186392

PATIENT
  Sex: Female
  Weight: 52.15 kg

DRUGS (3)
  1. LIPITOR [Suspect]
     Indication: BLOOD CHOLESTEROL INCREASED
     Dosage: 40 MG, 1X/DAY
     Route: 048
  2. FORTAL [Suspect]
     Indication: OSTEOPOROSIS
     Dosage: UNK
  3. ZETIA [Concomitant]
     Dosage: UNK

REACTIONS (2)
  - MUSCLE FATIGUE [None]
  - MYALGIA [None]
